FAERS Safety Report 5489724-5 (Version None)
Quarter: 2007Q4

REPORT INFORMATION
  Report Type: 
  Country: None (occurrence: None)
  Receive Date: 20071018
  Receipt Date: 20071008
  Transmission Date: 20080405
  Serious: Yes (Death, Hospitalization)
  Sender: FDA-Public Use
  Company Number: IN-BAXTER-2007BH008167

PATIENT
  Age: 60 Year
  Sex: Male
  Weight: 54 kg

DRUGS (4)
  1. DIANEAL [Suspect]
     Indication: PERITONEAL DIALYSIS
     Route: 033
     Dates: start: 20040207, end: 20070902
  2. DIANEAL [Suspect]
     Route: 033
     Dates: start: 20040207, end: 20070902
  3. CALCIUM [Concomitant]
     Indication: DRUG USE FOR UNKNOWN INDICATION
     Route: 065
     Dates: start: 20050101, end: 20070908
  4. DYTOR [Concomitant]
     Indication: DRUG USE FOR UNKNOWN INDICATION
     Route: 065
     Dates: start: 20050101, end: 20070908

REACTIONS (2)
  - PERITONITIS BACTERIAL [None]
  - SEPSIS [None]
